FAERS Safety Report 5575490-1 (Version None)
Quarter: 2007Q4

REPORT INFORMATION
  Report Type: 
  Country: None (occurrence: None)
  Receive Date: 20071227
  Receipt Date: 20071119
  Transmission Date: 20080405
  Serious: Yes (Other)
  Sender: FDA-Public Use
  Company Number: CH-GENENTECH-253411

PATIENT
  Age: 47 Year
  Sex: Female

DRUGS (8)
  1. HERCEPTIN [Suspect]
     Indication: BREAST CANCER
     Dosage: 2 MG/KG, UNK
     Dates: start: 20011201, end: 20020401
  2. HERCEPTIN [Suspect]
     Dosage: 2 MG/KG, UNK
     Dates: start: 20020501, end: 20031101
  3. HERCEPTIN [Suspect]
     Dosage: 6 MG/KG, Q3W
     Dates: start: 20031101, end: 20050101
  4. HERCEPTIN [Suspect]
     Dates: start: 20050901
  5. XELODA [Suspect]
     Indication: BREAST CANCER
     Dosage: UNK, UNK
     Dates: start: 20050901, end: 20051001
  6. NAVELBINE [Concomitant]
     Indication: DRUG USE FOR UNKNOWN INDICATION
     Dosage: 2 MG/KG, UNK
     Dates: start: 20011201, end: 20020401
  7. FEMARA [Concomitant]
     Indication: DRUG USE FOR UNKNOWN INDICATION
     Dosage: 25 MG, QD
     Dates: start: 20031101, end: 20050101
  8. TAXOTERE [Concomitant]
     Indication: DRUG USE FOR UNKNOWN INDICATION
     Dates: start: 20050101, end: 20050501

REACTIONS (2)
  - METASTATIC NEOPLASM [None]
  - SEPSIS [None]
